FAERS Safety Report 19786803 (Version 3)
Quarter: 2022Q1

REPORT INFORMATION
  Report Type: Report from Study
  Country: RU (occurrence: RU)
  Receive Date: 20210903
  Receipt Date: 20220221
  Transmission Date: 20220423
  Serious: Yes (Hospitalization)
  Sender: FDA-Public Use
  Company Number: RU-CELGENE-RUS-20210605253

PATIENT
  Age: 37 Year
  Sex: Male
  Weight: 92.3 kg

DRUGS (5)
  1. OZANIMOD [Suspect]
     Active Substance: OZANIMOD
     Indication: Crohn^s disease
     Dosage: .92 MILLIGRAM
     Route: 048
     Dates: start: 20210527, end: 20210617
  2. Salofalk [Concomitant]
     Indication: Crohn^s disease
     Dosage: 3 GRAM
     Route: 048
     Dates: start: 20191128
  3. MOVIPREP [Concomitant]
     Active Substance: ASCORBIC ACID\POLYETHYLENE GLYCOL 3350\POTASSIUM CHLORIDE\SODIUM ASCORBATE\SODIUM CHLORIDE\SODIUM SU
     Indication: Bowel preparation
     Dosage: 4 PACK
     Route: 048
     Dates: start: 20210526, end: 20210526
  4. PROPOFOL [Concomitant]
     Active Substance: PROPOFOL
     Indication: Product used for unknown indication
     Route: 041
     Dates: start: 20210527, end: 20210527
  5. Fenicamid [Concomitant]
     Indication: Product used for unknown indication
     Dosage: 01.FEB
     Route: 041
     Dates: start: 20210526, end: 20210526

REACTIONS (1)
  - Hepatitis cholestatic [Recovered/Resolved]

NARRATIVE: CASE EVENT DATE: 20210618
